FAERS Safety Report 25722584 (Version 2)
Quarter: 2025Q3

REPORT INFORMATION
  Report Type: Spontaneous
  Country: US (occurrence: US)
  Receive Date: 20250825
  Receipt Date: 20250828
  Transmission Date: 20251020
  Serious: No
  Sender: SANOFI AVENTIS
  Company Number: US-SANOFI-02629065

PATIENT
  Sex: Female

DRUGS (13)
  1. DUPIXENT [Suspect]
     Active Substance: DUPILUMAB
  2. NORTRIPTYLINE HYDROCHLORIDE [Concomitant]
     Active Substance: NORTRIPTYLINE HYDROCHLORIDE
  3. PREDNISONE [Concomitant]
     Active Substance: PREDNISONE
  4. GLEEVEC [Concomitant]
     Active Substance: IMATINIB MESYLATE
  5. AMLEXANOX [Concomitant]
     Active Substance: AMLEXANOX
  6. XOLAIR [Concomitant]
     Active Substance: OMALIZUMAB
  7. CETIRIZINE HELVEPHARM [Concomitant]
  8. CHILDRENS BENADRYL ALLERGY [Concomitant]
     Active Substance: DIPHENHYDRAMINE HYDROCHLORIDE
  9. KETOTIFEN FUMARATE [Concomitant]
     Active Substance: KETOTIFEN FUMARATE
  10. LORATADINE [Concomitant]
     Active Substance: LORATADINE
  11. MESTINON [Concomitant]
     Active Substance: PYRIDOSTIGMINE BROMIDE
  12. MIDODRINE [Concomitant]
     Active Substance: MIDODRINE
  13. NALTREXONE HYDROCHLORIDE [Concomitant]
     Active Substance: NALTREXONE HYDROCHLORIDE

REACTIONS (6)
  - Migraine [Unknown]
  - Abdominal discomfort [Unknown]
  - Hypoaesthesia [Not Recovered/Not Resolved]
  - Insomnia [Unknown]
  - Hypersensitivity [Unknown]
  - Wrong product administered [Unknown]
